FAERS Safety Report 9955356 (Version 1)
Quarter: 2014Q1

REPORT INFORMATION
  Report Type: Spontaneous
  Country: US (occurrence: US)
  Receive Date: 20140304
  Receipt Date: 20140304
  Transmission Date: 20141002
  Serious: No
  Sender: FDA-Public Use
  Company Number: US-ABBVIE-13P-163-1078605-00

PATIENT
  Sex: Female

DRUGS (6)
  1. HUMIRA [Suspect]
     Indication: PSORIASIS
     Route: 058
     Dates: start: 2012
  2. HYDROCORTISONE [Concomitant]
     Indication: PSORIASIS
  3. HYDROCHLOROTHIAZIDE [Concomitant]
     Indication: BLOOD PRESSURE
  4. LEVOTHYROXINE [Concomitant]
     Indication: THYROID DISORDER
  5. WATER PILL [Concomitant]
     Indication: CARDIAC DISORDER
  6. OMEPRAZOLE [Concomitant]
     Indication: GASTRIC DISORDER

REACTIONS (1)
  - Sinusitis [Recovered/Resolved]
